FAERS Safety Report 20418770 (Version 1)
Quarter: 2022Q1

REPORT INFORMATION
  Report Type: Spontaneous
  Country: US (occurrence: US)
  Receive Date: 20220202
  Receipt Date: 20220202
  Transmission Date: 20220424
  Serious: No
  Sender: FDA-Public Use
  Company Number: US-drreddys-SPO/USA/22/0146117

PATIENT
  Age: 67 Year
  Sex: Female
  Weight: 74.25 kg

DRUGS (6)
  1. BUPRENORPHINE\NALOXONE [Suspect]
     Active Substance: BUPRENORPHINE\NALOXONE
     Indication: Dependence
     Dosage: BUPRENORPHINE 8MG AND NALOXONE SUBLINGUAL FILM 2 MG
     Route: 060
     Dates: start: 2021
  2. PANTOPRAZOLE SODIUM [Concomitant]
     Active Substance: PANTOPRAZOLE SODIUM
     Indication: Product used for unknown indication
  3. TIZANIDINE HYDROCHLORIDE [Concomitant]
     Active Substance: TIZANIDINE HYDROCHLORIDE
     Indication: Product used for unknown indication
  4. ATENOLOL [Concomitant]
     Active Substance: ATENOLOL
     Indication: Product used for unknown indication
  5. LISINOPRIL [Concomitant]
     Active Substance: LISINOPRIL
     Indication: Product used for unknown indication
  6. GABAPENTIN [Concomitant]
     Active Substance: GABAPENTIN
     Indication: Product used for unknown indication

REACTIONS (3)
  - Underdose [Unknown]
  - Wrong technique in product usage process [Unknown]
  - Product quality issue [Unknown]
